FAERS Safety Report 5197591-2 (Version None)
Quarter: 2007Q1

REPORT INFORMATION
  Report Type: 
  Country: None (occurrence: None)
  Receive Date: 20070103
  Receipt Date: 20061226
  Transmission Date: 20070707
  Serious: Yes (Hospitalization)
  Sender: FDA-Public Use
  Company Number: ES-PFIZER INC-2006112084

PATIENT
  Sex: Male

DRUGS (2)
  1. SU-011,248 [Suspect]
     Indication: METASTATIC RENAL CELL CARCINOMA
     Route: 048
     Dates: start: 20060912, end: 20060914
  2. EPOETIN BETA [Concomitant]
     Route: 030

REACTIONS (4)
  - ANAEMIA [None]
  - HAEMATURIA [None]
  - HYPERCALCAEMIA [None]
  - URINARY RETENTION [None]
